FAERS Safety Report 4905071-1 (Version None)
Quarter: 2006Q1

REPORT INFORMATION
  Report Type: 
  Country: None (occurrence: None)
  Receive Date: 20060208
  Receipt Date: 20051110
  Transmission Date: 20060701
  Serious: No
  Sender: FDA-Public Use
  Company Number: US-GLAXOSMITHKLINE-A0581829A

PATIENT
  Age: 71 Year
  Sex: Female

DRUGS (5)
  1. PAXIL [Suspect]
     Indication: DEPRESSION
     Dosage: 15MG PER DAY
     Route: 048
     Dates: start: 20051101
  2. ADVIL [Concomitant]
  3. PEPCID [Concomitant]
  4. MICROZIDE [Concomitant]
  5. ATIVAN [Concomitant]

REACTIONS (5)
  - APPETITE DISORDER [None]
  - ASTHENIA [None]
  - DYSPEPSIA [None]
  - NAUSEA [None]
  - TREMOR [None]
